FAERS Safety Report 21963414 (Version 3)
Quarter: 2023Q4

REPORT INFORMATION
  Report Type: Spontaneous
  Country: US (occurrence: US)
  Receive Date: 20230207
  Receipt Date: 20231212
  Transmission Date: 20240110
  Serious: Yes (Other)
  Sender: FDA-Public Use
  Company Number: US-BRISTOL-MYERS SQUIBB COMPANY-2023-017031

PATIENT
  Age: 73 Year
  Sex: Male
  Weight: 104.78 kg

DRUGS (1)
  1. POMALYST [Suspect]
     Active Substance: POMALIDOMIDE
     Indication: Plasma cell myeloma
     Dosage: DAILY, 1-21 OF 28 DAY.
     Route: 048
     Dates: start: 20230114

REACTIONS (2)
  - Neuropathy peripheral [Recovered/Resolved]
  - Product dose omission issue [Unknown]
